FAERS Safety Report 16334223 (Version 1)
Quarter: 2019Q2

REPORT INFORMATION
  Report Type: Spontaneous
  Country: NL (occurrence: NL)
  Receive Date: 20190520
  Receipt Date: 20190520
  Transmission Date: 20190711
  Serious: Yes (Other)
  Sender: FDA-Public Use
  Company Number: NL-PFIZER INC-2019207137

PATIENT
  Age: 64 Year
  Sex: Male
  Weight: 76 kg

DRUGS (3)
  1. FOLIUMZUUR [Concomitant]
     Active Substance: FOLIC ACID
     Dosage: UNK
     Route: 048
  2. XELJANZ [Suspect]
     Active Substance: TOFACITINIB CITRATE
     Indication: RHEUMATOID ARTHRITIS
     Dosage: 5 MG, 2X/DAY
     Route: 050
     Dates: start: 20190115, end: 20190418
  3. METHOTREXAAT [METHOTREXATE] [Concomitant]
     Dosage: UNK

REACTIONS (1)
  - Thrombophlebitis [Recovering/Resolving]

NARRATIVE: CASE EVENT DATE: 20190215
